FAERS Safety Report 7347436-7 (Version None)
Quarter: 2011Q1

REPORT INFORMATION
  Report Type: 
  Country: None (occurrence: None)
  Receive Date: 20110311
  Receipt Date: 20110228
  Transmission Date: 20110831
  Serious: Yes (Other)
  Sender: FDA-Public Use
  Company Number: PHHY2011MY16984

PATIENT
  Sex: Female

DRUGS (3)
  1. QUETIAPINE [Concomitant]
     Dosage: 50 MG, QD
  2. EXELON [Suspect]
     Indication: DEMENTIA ALZHEIMER'S TYPE
     Dosage: 9.5 MG/24 HOURS
     Route: 062
     Dates: start: 20110130
  3. MEMANTINE [Concomitant]
     Dosage: 20 MG, QD

REACTIONS (4)
  - FACE INJURY [None]
  - FALL [None]
  - DIZZINESS [None]
  - JOINT INJURY [None]
